FAERS Safety Report 5803633-0 (Version None)
Quarter: 2008Q3

REPORT INFORMATION
  Report Type: 
  Country: None (occurrence: None)
  Receive Date: 20080708
  Receipt Date: 20080701
  Transmission Date: 20090109
  Serious: Yes (Other)
  Sender: FDA-Public Use
  Company Number: US-GENENTECH-262933

PATIENT
  Sex: Male
  Weight: 59 kg

DRUGS (9)
  1. XOLAIR [Suspect]
     Indication: ASTHMA
     Route: 058
     Dates: start: 20060117, end: 20061016
  2. SYMBICORT [Concomitant]
     Indication: DRUG USE FOR UNKNOWN INDICATION
  3. FLONASE [Concomitant]
     Indication: DRUG USE FOR UNKNOWN INDICATION
  4. ALBUTEROL [Concomitant]
     Indication: DRUG USE FOR UNKNOWN INDICATION
  5. SINGULAIR [Concomitant]
     Indication: DRUG USE FOR UNKNOWN INDICATION
     Dosage: 5 UNK, QD
     Dates: start: 20051101
  6. QVAR 40 [Concomitant]
     Indication: DRUG USE FOR UNKNOWN INDICATION
     Dosage: 80 UNK, BID
  7. SPIRIVA [Concomitant]
     Indication: DRUG USE FOR UNKNOWN INDICATION
     Dosage: 1 UNK, QD
  8. NASONEX [Concomitant]
     Indication: DRUG USE FOR UNKNOWN INDICATION
     Dosage: 2 UNK, UNK
  9. LORATADINE [Concomitant]
     Indication: DRUG USE FOR UNKNOWN INDICATION
     Dosage: 10 UNK, UNK

REACTIONS (1)
  - POLYARTHRITIS [None]
